FAERS Safety Report 23461188 (Version 1)
Quarter: 2024Q1

REPORT INFORMATION
  Report Type: Spontaneous
  Country: US (occurrence: US)
  Receive Date: 20240131
  Receipt Date: 20240131
  Transmission Date: 20240410
  Serious: Yes (Other)
  Sender: FDA-Public Use
  Company Number: US-ROCHE-2535367

PATIENT
  Sex: Male

DRUGS (34)
  1. CLONAZEPAM [Suspect]
     Active Substance: CLONAZEPAM
     Indication: Somnolence
     Route: 048
     Dates: start: 2010
  2. XOLAIR [Suspect]
     Active Substance: OMALIZUMAB
     Indication: Asthma
     Route: 058
     Dates: start: 2018, end: 20200121
  3. PRIVIGEN [Concomitant]
     Active Substance: HUMAN IMMUNOGLOBULIN G
     Route: 042
  4. CREON [Concomitant]
     Active Substance: PANCRELIPASE AMYLASE\PANCRELIPASE LIPASE\PANCRELIPASE PROTEASE
     Indication: Pancreatitis
     Dates: start: 2013
  5. LISINOPRIL [Concomitant]
     Active Substance: LISINOPRIL
     Indication: Hypertension
     Dates: start: 2005
  6. PHENERGAN [Concomitant]
     Active Substance: PROMETHAZINE HYDROCHLORIDE
     Indication: Nausea
     Dosage: PRN
     Dates: start: 2011
  7. LIBRAX [Concomitant]
     Active Substance: CHLORDIAZEPOXIDE HYDROCHLORIDE\CLIDINIUM BROMIDE
     Indication: Pancreatitis
     Dosage: PRN
     Dates: start: 2017
  8. LIBRAX [Concomitant]
     Active Substance: CHLORDIAZEPOXIDE HYDROCHLORIDE\CLIDINIUM BROMIDE
     Indication: Diarrhoea
     Dosage: PRN
     Dates: start: 2017
  9. LIBRAX [Concomitant]
     Active Substance: CHLORDIAZEPOXIDE HYDROCHLORIDE\CLIDINIUM BROMIDE
     Indication: Abdominal distension
     Dosage: PRN
     Dates: start: 2017
  10. NORVASC [Concomitant]
     Active Substance: AMLODIPINE BESYLATE
     Indication: Hypertension
  11. FLOMAX [Concomitant]
     Active Substance: TAMSULOSIN HYDROCHLORIDE
  12. AVODART [Concomitant]
     Active Substance: DUTASTERIDE
  13. PRIALT [Concomitant]
     Active Substance: ZICONOTIDE ACETATE
     Indication: Pain
     Route: 037
     Dates: start: 2017
  14. DUONEB [Concomitant]
     Active Substance: ALBUTEROL SULFATE\IPRATROPIUM BROMIDE
     Route: 055
  15. MUCOMYST [Concomitant]
     Active Substance: ACETYLCYSTEINE
     Route: 055
  16. DULERA [Concomitant]
     Active Substance: FORMOTEROL FUMARATE DIHYDRATE\MOMETASONE FUROATE
     Route: 055
  17. ZOLOFT [Concomitant]
     Active Substance: SERTRALINE HYDROCHLORIDE
     Indication: Anxiety
     Dates: start: 2015
  18. ZOLOFT [Concomitant]
     Active Substance: SERTRALINE HYDROCHLORIDE
     Indication: Depression
     Dates: start: 2015
  19. WELLBUTRIN XL [Concomitant]
     Active Substance: BUPROPION HYDROCHLORIDE
     Indication: Anxiety
     Dates: start: 2015
  20. WELLBUTRIN XL [Concomitant]
     Active Substance: BUPROPION HYDROCHLORIDE
     Indication: Depression
     Dates: start: 2015
  21. ALLEGRA [Concomitant]
     Active Substance: FEXOFENADINE HYDROCHLORIDE
  22. PROVENTIL [Concomitant]
     Active Substance: ALBUTEROL
     Dosage: PRN
     Route: 055
  23. NEURONTIN [Concomitant]
     Active Substance: GABAPENTIN
     Dosage: ONCE NIGHTLY
  24. PREDNISOLONE [Concomitant]
     Active Substance: PREDNISOLONE
  25. VENTOLIN HFA [Concomitant]
     Active Substance: ALBUTEROL SULFATE
  26. EFINACONAZOLE [Concomitant]
     Active Substance: EFINACONAZOLE
  27. FERROUS SULFATE [Concomitant]
     Active Substance: FERROUS SULFATE
  28. COLESTID [Concomitant]
     Active Substance: COLESTIPOL HYDROCHLORIDE
  29. RASUVO [Concomitant]
     Active Substance: METHOTREXATE SODIUM
  30. BREZTRI [Concomitant]
     Active Substance: BUDESONIDE\FORMOTEROL\GLYCOPYRROLATE
  31. AZULFIDINE [Concomitant]
     Active Substance: SULFASALAZINE
  32. ATIVAN [Concomitant]
     Active Substance: LORAZEPAM
  33. FOLVITE [Concomitant]
     Active Substance: FOLIC ACID
  34. MUCINEX [Concomitant]
     Active Substance: GUAIFENESIN

REACTIONS (7)
  - Pancreatitis chronic [Not Recovered/Not Resolved]
  - Good syndrome [Not Recovered/Not Resolved]
  - Oral infection [Recovered/Resolved]
  - Salivary hypersecretion [Not Recovered/Not Resolved]
  - Productive cough [Unknown]
  - Bronchiectasis [Not Recovered/Not Resolved]
  - Hypersensitivity [Unknown]

NARRATIVE: CASE EVENT DATE: 20110101
